FAERS Safety Report 21135139 (Version 1)
Quarter: 2022Q3

REPORT INFORMATION
  Report Type: Spontaneous
  Country: DK (occurrence: DK)
  Receive Date: 20220727
  Receipt Date: 20220727
  Transmission Date: 20221027
  Serious: Yes (Death, Hospitalization, Disabling, Other)
  Sender: FDA-Public Use
  Company Number: None

PATIENT
  Age: 63 Year
  Sex: Female

DRUGS (5)
  1. CYCLOPHOSPHAMIDE [Suspect]
     Active Substance: CYCLOPHOSPHAMIDE
     Indication: Glomerulonephritis
     Dosage: 800 MG DOSAGE: INTERVAL UNKNOWN. STRENGTH: UNKNOWN
     Route: 042
     Dates: start: 20200130
  2. INSULIN NOS [Concomitant]
     Active Substance: INSULIN NOS
     Indication: Steroid diabetes
     Route: 065
     Dates: start: 20200603
  3. DULOXETINE [Concomitant]
     Active Substance: DULOXETINE
     Indication: Depression
     Route: 065
     Dates: start: 20200624
  4. MIRTAZAPINE [Concomitant]
     Active Substance: MIRTAZAPINE
     Indication: Depression
     Route: 065
     Dates: start: 20200512
  5. PREDNISOLONE [Concomitant]
     Active Substance: PREDNISOLONE
     Indication: Adrenocortical steroid therapy
     Dosage: DOSAGE: 1MG/KG. DOSE REDUCED AT UNKNOWN DATE PRIOR TO 14JUL2020
     Route: 065
     Dates: start: 202001

REACTIONS (5)
  - Protein-losing gastroenteropathy [Fatal]
  - Lymphopenia [Fatal]
  - Feeding disorder [Unknown]
  - Chills [Unknown]
  - Diarrhoea [Unknown]

NARRATIVE: CASE EVENT DATE: 20200101
